FAERS Safety Report 7809784-3 (Version None)
Quarter: 2011Q4

REPORT INFORMATION
  Report Type: 
  Country: None (occurrence: None)
  Receive Date: 20111007
  Receipt Date: 20110926
  Transmission Date: 20120403
  Serious: Yes (Hospitalization)
  Sender: FDA-Public Use
  Company Number: 2011SP045481

PATIENT
  Age: 67 Year
  Sex: Male
  Weight: 106.1 kg

DRUGS (9)
  1. TRAMADOL HCL [Concomitant]
  2. LANSOPRAZOLE [Concomitant]
  3. ALLOPURINOL [Concomitant]
  4. DEXAMETHASONE [Suspect]
     Indication: MULTIPLE MYELOMA
     Dosage: 20 MG;PO
     Route: 048
     Dates: start: 20110307
  5. DEXAMETHASONE [Suspect]
     Indication: MULTIPLE MYELOMA
     Dosage: 20 MG;PO
     Route: 048
     Dates: start: 20110214, end: 20110224
  6. BORTEZOMIB [Suspect]
     Indication: MULTIPLE MYELOMA
     Dosage: 2.9 MG;IV
     Route: 042
     Dates: start: 20110214, end: 20110228
  7. BORTEZOMIB [Suspect]
     Indication: MULTIPLE MYELOMA
     Dosage: 2.9 MG;IV
     Route: 042
     Dates: start: 20110307
  8. ZOMETA [Concomitant]
  9. ACYCLOVIR [Concomitant]

REACTIONS (2)
  - PNEUMONIA [None]
  - LOWER RESPIRATORY TRACT INFECTION [None]
